FAERS Safety Report 23087285 (Version 2)
Quarter: 2025Q2

REPORT INFORMATION
  Report Type: Spontaneous
  Country: JP (occurrence: JP)
  Receive Date: 20231020
  Receipt Date: 20250510
  Transmission Date: 20250716
  Serious: Yes (Death, Other)
  Sender: UNITED THERAPEUTICS
  Company Number: JP-UNITED THERAPEUTICS-UNT-2023-029648

PATIENT
  Age: 11 Year
  Sex: Female
  Weight: 30.6 kg

DRUGS (16)
  1. UNITUXIN [Suspect]
     Active Substance: DINUTUXIMAB
     Indication: Neuroblastoma recurrent
     Route: 041
     Dates: start: 20230221, end: 20230224
  2. UNITUXIN [Suspect]
     Active Substance: DINUTUXIMAB
     Route: 041
     Dates: start: 20230405, end: 20230408
  3. TECELEUKIN [Suspect]
     Active Substance: TECELEUKIN
     Indication: Neuroblastoma recurrent
     Dates: start: 20230329, end: 20230401
  4. TECELEUKIN [Suspect]
     Active Substance: TECELEUKIN
     Dates: start: 20230405, end: 20230408
  5. FILGRASTIM [Concomitant]
     Active Substance: FILGRASTIM
     Indication: Neuroblastoma recurrent
     Dosage: 5 ?G/KG, QD
     Dates: start: 20230218, end: 20230303
  6. MORPHINE HYDROCHLORIDE [Concomitant]
     Active Substance: MORPHINE HYDROCHLORIDE
     Indication: Neuroblastoma recurrent
     Dates: start: 20230221, end: 20230224
  7. MORPHINE HYDROCHLORIDE [Concomitant]
     Active Substance: MORPHINE HYDROCHLORIDE
     Indication: Prophylaxis
  8. HYDROXYZINE [Concomitant]
     Active Substance: HYDROXYZINE HYDROCHLORIDE
     Indication: Prophylaxis
     Dates: start: 20230221, end: 20230225
  9. HYDROXYZINE [Concomitant]
     Active Substance: HYDROXYZINE HYDROCHLORIDE
     Dates: start: 20230404, end: 20230408
  10. ACETAMINOPHEN [Concomitant]
     Active Substance: ACETAMINOPHEN
     Indication: Prophylaxis
     Dates: start: 20230221, end: 20230225
  11. ACETAMINOPHEN [Concomitant]
     Active Substance: ACETAMINOPHEN
     Indication: Neuroblastoma recurrent
  12. ACYCLOVIR [Concomitant]
     Active Substance: ACYCLOVIR
     Indication: Prophylaxis
     Route: 041
     Dates: start: 20230223, end: 20230303
  13. ACYCLOVIR [Concomitant]
     Active Substance: ACYCLOVIR
     Route: 041
     Dates: start: 20230329, end: 20230411
  14. VFEND [Concomitant]
     Active Substance: VORICONAZOLE
     Indication: Prophylaxis
     Dates: start: 20230223, end: 20230303
  15. VFEND [Concomitant]
     Active Substance: VORICONAZOLE
  16. CEFOTAXIME [Concomitant]
     Active Substance: CEFOTAXIME SODIUM
     Indication: Prophylaxis

REACTIONS (5)
  - Neuroblastoma recurrent [Fatal]
  - Pain [Recovered/Resolved]
  - Pyrexia [Unknown]
  - Pain [Unknown]
  - Pyrexia [Unknown]

NARRATIVE: CASE EVENT DATE: 20230405
